FAERS Safety Report 22386316 (Version 1)
Quarter: 2023Q2

REPORT INFORMATION
  Report Type: Spontaneous
  Country: US (occurrence: US)
  Receive Date: 20230530
  Receipt Date: 20230530
  Transmission Date: 20230722
  Serious: No
  Sender: FDA-Public Use
  Company Number: US-BAUSCHBL-2023BNL004577

PATIENT
  Age: 50 Year
  Sex: Female
  Weight: 71.732 kg

DRUGS (1)
  1. TIMOLOL MALEATE [Suspect]
     Active Substance: TIMOLOL MALEATE
     Indication: Glaucoma
     Route: 047
     Dates: start: 20230525

REACTIONS (2)
  - Swelling of eyelid [Unknown]
  - Instillation site pruritus [Unknown]

NARRATIVE: CASE EVENT DATE: 20230525
